FAERS Safety Report 13849801 (Version 1)
Quarter: 2017Q3

REPORT INFORMATION
  Report Type: Spontaneous
  Country: DE (occurrence: DE)
  Receive Date: 20170809
  Receipt Date: 20170809
  Transmission Date: 20171127
  Serious: Yes (Other)
  Sender: FDA-Public Use
  Company Number: PHHY2017DE116077

PATIENT
  Sex: Female

DRUGS (1)
  1. GILENYA [Suspect]
     Active Substance: FINGOLIMOD HYDROCHLORIDE
     Indication: SECONDARY PROGRESSIVE MULTIPLE SCLEROSIS
     Dosage: 0.5 MG, QD
     Route: 048
     Dates: start: 20170607

REACTIONS (5)
  - Secondary progressive multiple sclerosis [Unknown]
  - Alopecia [Unknown]
  - Disease progression [Unknown]
  - Product use in unapproved indication [Unknown]
  - Sunburn [Unknown]

NARRATIVE: CASE EVENT DATE: 20170607
